FAERS Safety Report 8124743-1 (Version None)
Quarter: 2012Q1

REPORT INFORMATION
  Report Type: 
  Country: None (occurrence: None)
  Receive Date: 20120209
  Receipt Date: 20120208
  Transmission Date: 20120608
  Serious: Yes (Other)
  Sender: FDA-Public Use
  Company Number: DK-PFIZER INC-2012035088

PATIENT
  Age: 45 Year
  Sex: Female
  Weight: 50 kg

DRUGS (1)
  1. VARENICLINE TARTRATE [Suspect]
     Indication: SMOKING CESSATION THERAPY
     Dosage: 0.5 MG + 1 MG
     Dates: start: 20100125, end: 20100225

REACTIONS (6)
  - IRRITABLE BOWEL SYNDROME [None]
  - AMENORRHOEA [None]
  - VOMITING [None]
  - NAUSEA [None]
  - DEPRESSION [None]
  - HYPERHIDROSIS [None]
